FAERS Safety Report 10058512 (Version 1)
Quarter: 2014Q2

REPORT INFORMATION
  Report Type: Spontaneous
  Country: US (occurrence: US)
  Receive Date: 20140404
  Receipt Date: 20140404
  Transmission Date: 20141212
  Serious: Yes (Hospitalization)
  Sender: FDA-Public Use
  Company Number: US-BAYER-2014-049514

PATIENT
  Age: 34 Year
  Sex: Female
  Weight: 130 kg

DRUGS (10)
  1. OCELLA [Suspect]
     Route: 048
  2. YASMIN [Suspect]
     Route: 048
  3. LEXAPRO [Concomitant]
  4. TRAZODONE [Concomitant]
  5. LEVOTHYROXINE [Concomitant]
  6. DARVOCET [Concomitant]
  7. DEMEROL [Concomitant]
  8. DILAUDID [Concomitant]
  9. ALPRAZOLAM [Concomitant]
  10. VITAMIN D [Concomitant]

REACTIONS (1)
  - Deep vein thrombosis [None]
